FAERS Safety Report 10284213 (Version 2)
Quarter: 2014Q3

REPORT INFORMATION
  Report Type: Spontaneous
  Country: US (occurrence: US)
  Receive Date: 20140708
  Receipt Date: 20140819
  Transmission Date: 20150326
  Serious: No
  Sender: FDA-Public Use
  Company Number: US-009507513-1407USA002753

PATIENT
  Sex: Female
  Weight: 63.49 kg

DRUGS (1)
  1. NASONEX [Suspect]
     Active Substance: MOMETASONE FUROATE
     Indication: HYPERSENSITIVITY
     Dosage: TOTAL DAILY DOSE: TWO SPRAYS EACH NARE AT BEDTIME
     Route: 045
     Dates: start: 201106

REACTIONS (3)
  - Drug dose omission [Unknown]
  - Product quality issue [Unknown]
  - No adverse event [Unknown]
